FAERS Safety Report 18202772 (Version 1)
Quarter: 2020Q3

REPORT INFORMATION
  Report Type: Spontaneous
  Country: US (occurrence: US)
  Receive Date: 20200827
  Receipt Date: 20200827
  Transmission Date: 20201103
  Serious: Yes (Hospitalization)
  Sender: FDA-Public Use
  Company Number: None

PATIENT
  Age: 58 Year
  Sex: Male
  Weight: 92.08 kg

DRUGS (2)
  1. PROMACTA [Concomitant]
     Active Substance: ELTROMBOPAG OLAMINE
     Dates: start: 20200414
  2. PROMACTA [Suspect]
     Active Substance: ELTROMBOPAG OLAMINE
     Indication: IMMUNE THROMBOCYTOPENIA
     Route: 048
     Dates: start: 20200414, end: 20200813

REACTIONS (1)
  - Thrombosis [None]

NARRATIVE: CASE EVENT DATE: 20200813
